FAERS Safety Report 8940929 (Version 7)
Quarter: 2013Q4

REPORT INFORMATION
  Report Type: Spontaneous
  Country: US (occurrence: US)
  Receive Date: 20121203
  Receipt Date: 20131120
  Transmission Date: 20140711
  Serious: Yes (Hospitalization, Disabling, Other)
  Sender: FDA-Public Use
  Company Number: US-009507513-1211USA012340

PATIENT
  Sex: Female

DRUGS (9)
  1. FOSAMAX PLUS D [Suspect]
     Indication: OSTEOPOROSIS
     Dosage: 70 MG/2800IU, QW
     Route: 048
     Dates: start: 2000
  2. FOSAMAX PLUS D [Suspect]
     Dosage: 70 MG/5600 IU, QW
     Route: 048
  3. ALENDRONATE SODIUM [Suspect]
     Dosage: 70 MG, QW
     Route: 048
  4. CHOLECALCIFEROL [Concomitant]
     Dosage: UNK
     Dates: start: 1997
  5. ASCORBIC ACID [Concomitant]
     Dosage: UNK
     Dates: start: 1997
  6. OMEGA-3 MARINE TRIGLYCERIDES [Concomitant]
     Dosage: UNK
     Dates: start: 1997
  7. UBIDECARENONE [Concomitant]
     Dosage: UNK
     Dates: start: 1997
  8. VITAMINS (UNSPECIFIED) [Concomitant]
     Dosage: UNK
     Dates: start: 1997
  9. CALCIUM (UNSPECIFIED) [Concomitant]
     Dosage: UNK
     Dates: start: 1997

REACTIONS (13)
  - Femur fracture [Recovering/Resolving]
  - Intramedullary rod insertion [Unknown]
  - Femur fracture [Not Recovered/Not Resolved]
  - Malignant melanoma [Unknown]
  - Osteoporosis [Not Recovered/Not Resolved]
  - Stress fracture [Not Recovered/Not Resolved]
  - Low turnover osteopathy [Not Recovered/Not Resolved]
  - Blood cholesterol increased [Unknown]
  - Foot fracture [Recovering/Resolving]
  - Facet joint syndrome [Unknown]
  - Osteopenia [Unknown]
  - Bunion operation [Unknown]
  - Meniscus injury [Unknown]
